FAERS Safety Report 6635341-0 (Version None)
Quarter: 2010Q1

REPORT INFORMATION
  Report Type: 
  Country: None (occurrence: None)
  Receive Date: 20100315
  Receipt Date: 20100301
  Transmission Date: 20100710
  Serious: Yes (Hospitalization, Other)
  Sender: FDA-Public Use
  Company Number: US-ELI_LILLY_AND_COMPANY-US201003002852

PATIENT
  Age: 48 Year
  Sex: Male

DRUGS (3)
  1. GEMCITABINE HCL [Suspect]
     Indication: NON-SMALL CELL LUNG CANCER
     Dosage: 1000 MG/M2, DAYS 1 AND 8 EVERY 3 WEEKS
     Route: 042
  2. CARBOPLATIN [Concomitant]
     Indication: NON-SMALL CELL LUNG CANCER
     Dosage: 5 D/F, DAY 1 EVERY 3 WEEKS
     Route: 042
  3. HYDROCORTISONE [Concomitant]
     Indication: URTICARIA
     Dosage: 100 MG, PRIOR TO PLASMAPHERESIS
     Route: 042

REACTIONS (3)
  - HAEMOLYTIC URAEMIC SYNDROME [None]
  - HYPERTENSION [None]
  - THROMBOTIC THROMBOCYTOPENIC PURPURA [None]
